FAERS Safety Report 9445813 (Version 2)
Quarter: 2013Q3

REPORT INFORMATION
  Report Type: Spontaneous
  Country: BR (occurrence: BR)
  Receive Date: 20130807
  Receipt Date: 20130812
  Transmission Date: 20140515
  Serious: Yes (Death, Life-Threatening, Hospitalization, Disabling)
  Sender: FDA-Public Use
  Company Number: BR-B.I. PHARMACEUTICALS,INC./RIDGEFIELD-2013-BR-00897BR

PATIENT
  Age: 65 Year
  Sex: Male
  Weight: 74 kg

DRUGS (3)
  1. SPIRIVA RESPIMAT [Suspect]
     Indication: CHRONIC OBSTRUCTIVE PULMONARY DISEASE
     Dosage: 2.5 MCG
     Route: 055
     Dates: start: 20100928, end: 20130713
  2. FORASEQ [Concomitant]
     Indication: CHRONIC OBSTRUCTIVE PULMONARY DISEASE
     Dates: start: 2006, end: 20130713
  3. DUOVENT [Concomitant]
     Indication: CHRONIC OBSTRUCTIVE PULMONARY DISEASE
     Dates: start: 2011, end: 20130713

REACTIONS (9)
  - Cardio-respiratory arrest [Fatal]
  - Ischaemic cardiomyopathy [Fatal]
  - Pleural effusion [Fatal]
  - Pleural disorder [Fatal]
  - Gait disturbance [Fatal]
  - Blood pressure increased [Unknown]
  - Aphasia [Unknown]
  - Malaise [Unknown]
  - Dyspnoea [Unknown]
